FAERS Safety Report 18454927 (Version 2)
Quarter: 2020Q4

REPORT INFORMATION
  Report Type: Spontaneous
  Country: JP (occurrence: JP)
  Receive Date: 20201102
  Receipt Date: 20201106
  Transmission Date: 20210114
  Serious: Yes (Other)
  Sender: FDA-Public Use
  Company Number: JP-JNJFOC-20201050972

PATIENT
  Age: 78 Year
  Sex: Male

DRUGS (3)
  1. UROKINASE [Concomitant]
     Active Substance: UROKINASE
  2. RADICUT [Concomitant]
     Active Substance: EDARAVONE
     Indication: ACUTE RESPIRATORY DISTRESS SYNDROME
  3. XARELTO [Suspect]
     Active Substance: RIVAROXABAN
     Indication: PRODUCT USED FOR UNKNOWN INDICATION
     Route: 048

REACTIONS (2)
  - Interstitial lung disease [Unknown]
  - Pulmonary alveolar haemorrhage [Unknown]
